FAERS Safety Report 16865202 (Version 2)
Quarter: 2019Q4

REPORT INFORMATION
  Report Type: Report from Study
  Country: CN (occurrence: CN)
  Receive Date: 20190930
  Receipt Date: 20191029
  Transmission Date: 20200122
  Serious: Yes (Other)
  Sender: FDA-Public Use
  Company Number: CN-ROCHE-2088647

PATIENT
  Age: 67 Year
  Sex: Male
  Weight: 52 kg

DRUGS (1)
  1. AVASTIN [Suspect]
     Active Substance: BEVACIZUMAB
     Indication: NON-SMALL CELL LUNG CANCER
     Route: 041
     Dates: start: 20170717

REACTIONS (5)
  - Nasopharyngitis [Unknown]
  - Movement disorder [Unknown]
  - Pyrexia [Unknown]
  - Brain oedema [Unknown]
  - Influenza [Unknown]

NARRATIVE: CASE EVENT DATE: 20180210
